FAERS Safety Report 4584315-2 (Version None)
Quarter: 2005Q1

REPORT INFORMATION
  Report Type: 
  Country: None (occurrence: None)
  Receive Date: 20050125
  Receipt Date: 20041025
  Transmission Date: 20050727
  Serious: No
  Sender: FDA-Public Use
  Company Number: USA041082208

PATIENT
  Age: 74 Year
  Sex: Female

DRUGS (7)
  1. FORTEO [Suspect]
     Indication: FRACTURE
     Dates: start: 20040930
  2. HUMALOG [Concomitant]
  3. ZESTRIL [Concomitant]
  4. LANTUS [Concomitant]
  5. QUININE [Concomitant]
  6. TOPROL-XL [Concomitant]
  7. LASIX [Concomitant]

REACTIONS (1)
  - OEDEMA PERIPHERAL [None]
